FAERS Safety Report 13326768 (Version 1)
Quarter: 2017Q1

REPORT INFORMATION
  Report Type: Spontaneous
  Country: US (occurrence: US)
  Receive Date: 20170312
  Receipt Date: 20170312
  Transmission Date: 20170428
  Serious: No
  Sender: FDA-Public Use
  Company Number: US-SHIRE-US201703917

PATIENT
  Sex: Female

DRUGS (1)
  1. XIIDRA [Suspect]
     Active Substance: LIFITEGRAST
     Indication: DRY EYE
     Dosage: 1 GTT TO EACH EYE, 2X/DAY:BID
     Route: 047
     Dates: start: 2016

REACTIONS (5)
  - Eye swelling [Unknown]
  - Vision blurred [Not Recovered/Not Resolved]
  - Sinusitis [Unknown]
  - Eye pain [Not Recovered/Not Resolved]
  - Swelling face [Not Recovered/Not Resolved]
